FAERS Safety Report 19164928 (Version 1)
Quarter: 2021Q2

REPORT INFORMATION
  Report Type: Spontaneous
  Country: US (occurrence: US)
  Receive Date: 20210421
  Receipt Date: 20210421
  Transmission Date: 20210717
  Serious: No
  Sender: FDA-Public Use
  Company Number: US-JNJFOC-20210435379

PATIENT
  Age: 64 Year
  Sex: Female
  Weight: 92.99 kg

DRUGS (1)
  1. ULTRAM [Suspect]
     Active Substance: TRAMADOL HYDROCHLORIDE
     Indication: RHEUMATOID ARTHRITIS
     Route: 065

REACTIONS (6)
  - Urticaria [Not Recovered/Not Resolved]
  - Product use in unapproved indication [Unknown]
  - Urticaria [Recovering/Resolving]
  - Rash [Recovering/Resolving]
  - Pruritus [Not Recovered/Not Resolved]
  - Off label use [Unknown]
